FAERS Safety Report 4387875-X (Version None)
Quarter: 2004Q2

REPORT INFORMATION
  Report Type: 
  Country: None (occurrence: None)
  Receive Date: 20040630
  Receipt Date: 20040615
  Transmission Date: 20050107
  Serious: Yes (Hospitalization)
  Sender: FDA-Public Use
  Company Number: PHRM2004FR02143

PATIENT
  Age: 20 Year
  Sex: Female
  Weight: 56 kg

DRUGS (6)
  1. TRILEPTAL [Suspect]
     Indication: EPILEPSY
     Route: 048
  2. KEPPRA [Suspect]
     Indication: EPILEPSY
     Route: 048
  3. URBANYL [Suspect]
     Indication: EPILEPSY
     Route: 048
  4. LOVENOX [Concomitant]
  5. BREXIN ^EURO-LABOR^ [Concomitant]
     Route: 048
  6. DEXTROPROPOXYPHENE [Concomitant]

REACTIONS (6)
  - ANKLE OPERATION [None]
  - FEELING HOT [None]
  - JOINT SPRAIN [None]
  - PAIN IN EXTREMITY [None]
  - REFLEX SYMPATHETIC DYSTROPHY [None]
  - SCAR [None]
